FAERS Safety Report 10185746 (Version 1)
Quarter: 2014Q2

REPORT INFORMATION
  Report Type: Report from Study
  Country: BR (occurrence: BR)
  Receive Date: 20140521
  Receipt Date: 20140521
  Transmission Date: 20141212
  Serious: Yes (Other)
  Sender: FDA-Public Use
  Company Number: PHHY2014BR061107

PATIENT
  Age: 67 Year
  Sex: Female
  Weight: 65 kg

DRUGS (3)
  1. ACLASTA [Suspect]
     Indication: OSTEOPOROSIS
     Dosage: UNK ONCE YEAR
     Route: 042
     Dates: start: 201403
  2. PRESSAT [Concomitant]
     Dosage: 1 DF, DAILY
     Dates: start: 2012
  3. DESOL [Concomitant]
     Indication: OSTEOPOROSIS
     Dosage: 15 DROPS, DAILY
     Dates: start: 2013

REACTIONS (3)
  - Hand fracture [Recovering/Resolving]
  - Skin discolouration [Recovering/Resolving]
  - Peripheral swelling [Recovering/Resolving]
